FAERS Safety Report 10177124 (Version 1)
Quarter: 2014Q2

REPORT INFORMATION
  Report Type: Spontaneous
  Country: US (occurrence: US)
  Receive Date: 20140516
  Receipt Date: 20140516
  Transmission Date: 20141212
  Serious: No
  Sender: FDA-Public Use
  Company Number: US-B.I. PHARMACEUTICALS,INC./RIDGEFIELD-2014-BI-20418BP

PATIENT
  Age: 89 Year
  Sex: Male

DRUGS (3)
  1. MICARDIS [Suspect]
     Indication: BLOOD PRESSURE MANAGEMENT
     Dosage: 80 MG
     Route: 048
  2. WATER PILL [Concomitant]
     Indication: BLOOD PRESSURE MANAGEMENT
     Route: 065
  3. OMEGA PLUS SUPPLEMENT [Concomitant]
     Route: 065
     Dates: start: 20140506

REACTIONS (2)
  - Blood pressure increased [Not Recovered/Not Resolved]
  - Dry mouth [Not Recovered/Not Resolved]
